FAERS Safety Report 9463653 (Version 1)
Quarter: 2013Q3

REPORT INFORMATION
  Report Type: Report from Study
  Country: US (occurrence: US)
  Receive Date: 20130819
  Receipt Date: 20130819
  Transmission Date: 20140515
  Serious: Yes (Other)
  Sender: FDA-Public Use
  Company Number: PHEH2013US017409

PATIENT
  Age: 7 Year
  Sex: Male

DRUGS (1)
  1. AFINITOR [Suspect]
     Indication: ASTROCYTOMA, LOW GRADE
     Dosage: 5 MG, UNK
     Route: 048
     Dates: start: 20110907

REACTIONS (1)
  - Cardiac neoplasm unspecified [Unknown]
